FAERS Safety Report 7563610-9 (Version None)
Quarter: 2011Q2

REPORT INFORMATION
  Report Type: 
  Country: None (occurrence: None)
  Receive Date: 20110622
  Receipt Date: 20110610
  Transmission Date: 20111010
  Serious: Yes (Hospitalization)
  Sender: FDA-Public Use
  Company Number: DE-JNJFOC-20110604134

PATIENT
  Sex: Male
  Weight: 82 kg

DRUGS (5)
  1. ZOFRAN [Concomitant]
     Indication: VOMITING
     Route: 048
  2. ABIRATERONE ACETATE [Suspect]
     Route: 048
  3. ARANESP [Concomitant]
     Indication: HAEMOGLOBIN DECREASED
     Route: 058
  4. ABIRATERONE ACETATE [Suspect]
     Indication: PROSTATE CANCER METASTATIC
     Route: 048
     Dates: start: 20110511
  5. MCP [Concomitant]
     Indication: NAUSEA
     Route: 048
     Dates: start: 20110515

REACTIONS (8)
  - CONSTIPATION [None]
  - HAEMOGLOBIN DECREASED [None]
  - NAUSEA [None]
  - HYPERTENSION [None]
  - DYSPNOEA [None]
  - VOMITING [None]
  - FATIGUE [None]
  - FLUSHING [None]
